FAERS Safety Report 19620297 (Version 1)
Quarter: 2021Q3

REPORT INFORMATION
  Report Type: Spontaneous
  Country: US (occurrence: US)
  Receive Date: 20210727
  Receipt Date: 20210727
  Transmission Date: 20211014
  Serious: Yes (Other)
  Sender: FDA-Public Use
  Company Number: None

PATIENT
  Age: 33 Year
  Sex: Male
  Weight: 70.7 kg

DRUGS (1)
  1. LEVETIRACETAM IR [Suspect]
     Active Substance: LEVETIRACETAM
     Indication: SEIZURE
     Route: 048
     Dates: start: 20080609, end: 20090609

REACTIONS (1)
  - Epilepsy [None]

NARRATIVE: CASE EVENT DATE: 20090618
